FAERS Safety Report 4421148-1 (Version None)
Quarter: 2004Q3

REPORT INFORMATION
  Report Type: 
  Country: None (occurrence: None)
  Receive Date: 20040804
  Receipt Date: 20040722
  Transmission Date: 20050211
  Serious: Yes (Other)
  Sender: FDA-Public Use
  Company Number: 2004046627

PATIENT
  Age: 61 Year
  Sex: Male
  Weight: 85 kg

DRUGS (4)
  1. LIPITOR [Suspect]
     Indication: HYPERTRIGLYCERIDAEMIA
     Dosage: 20 MG (20 MG 1 IN 1 D, ORAL)
     Route: 048
     Dates: start: 20030101, end: 20040416
  2. METOPROLOL TARTRATE [Concomitant]
  3. PERINDOPRIL(PERINDOPRIL) [Concomitant]
  4. LANSOPRAZOLE [Concomitant]

REACTIONS (2)
  - AORTIC ANEURYSM RUPTURE [None]
  - MYALGIA [None]
